FAERS Safety Report 8320321-X (Version None)
Quarter: 2012Q2

REPORT INFORMATION
  Report Type: 
  Country: None (occurrence: None)
  Receive Date: 20120426
  Receipt Date: 20120426
  Transmission Date: 20120825
  Serious: No
  Sender: FDA-Public Use
  Company Number: None

PATIENT
  Sex: Female
  Weight: 45.3597 kg

DRUGS (1)
  1. BONIVA [Suspect]
     Indication: OSTEOPENIA
     Dosage: 150 MG MONTHLY ORALLY
     Route: 048
     Dates: start: 20071101, end: 20111101

REACTIONS (6)
  - BACK PAIN [None]
  - PELVIC PAIN [None]
  - GROIN PAIN [None]
  - PAIN IN EXTREMITY [None]
  - ARTHRALGIA [None]
  - SLEEP DISORDER [None]
